FAERS Safety Report 8444440-2 (Version None)
Quarter: 2012Q2

REPORT INFORMATION
  Report Type: 
  Country: None (occurrence: None)
  Receive Date: 20120611
  Receipt Date: 20120525
  Transmission Date: 20120825
  Serious: Yes (Other)
  Sender: FDA-Public Use
  Company Number: DSA_57531_2012

PATIENT
  Sex: Male

DRUGS (1)
  1. ENALAPRIL MALEATE AND HYDROCHLOROTHIAZIDE [Suspect]
     Indication: HYPERTENSION
     Dosage: 10-25 MG IN THE MORNING
     Dates: start: 19870101

REACTIONS (3)
  - DYSPEPSIA [None]
  - GLAUCOMA [None]
  - DYSGEUSIA [None]
